FAERS Safety Report 14068397 (Version 3)
Quarter: 2023Q2

REPORT INFORMATION
  Report Type: Spontaneous
  Country: PT (occurrence: PT)
  Receive Date: 20171010
  Receipt Date: 20230616
  Transmission Date: 20230722
  Serious: Yes (Hospitalization, Other)
  Sender: FDA-Public Use
  Company Number: PT-MEDA-M-EU-2017070208

PATIENT
  Age: 50 Year
  Sex: Female

DRUGS (2)
  1. VENLAFAXINE [Interacting]
     Active Substance: VENLAFAXINE HYDROCHLORIDE
     Indication: Product used for unknown indication
     Dosage: UNK
     Route: 065
  2. MOCLOBEMIDE [Interacting]
     Active Substance: MOCLOBEMIDE
     Indication: Product used for unknown indication
     Dosage: UNK
     Route: 065

REACTIONS (11)
  - Clonus [Recovering/Resolving]
  - Toxicity to various agents [Recovered/Resolved]
  - Extensor plantar response [Recovering/Resolving]
  - Poisoning deliberate [Recovered/Resolved]
  - Nystagmus [Recovering/Resolving]
  - Serotonin syndrome [Recovered/Resolved]
  - Myoclonus [Recovering/Resolving]
  - Rhabdomyolysis [Recovered/Resolved]
  - Hypertension [Unknown]
  - Drug abuse [Unknown]
  - Drug interaction [Unknown]
